FAERS Safety Report 17914316 (Version 9)
Quarter: 2021Q1

REPORT INFORMATION
  Report Type: Report from Study
  Country: PL (occurrence: PL)
  Receive Date: 20200618
  Receipt Date: 20210309
  Transmission Date: 20210419
  Serious: Yes (Hospitalization, Other)
  Sender: FDA-Public Use
  Company Number: PL-EXELIXIS-XL18420030582

PATIENT
  Age: 69 Year
  Sex: Male
  Weight: 52 kg

DRUGS (29)
  1. ATEZOLIZUMAB. [Suspect]
     Active Substance: ATEZOLIZUMAB
     Indication: HEPATOCELLULAR CARCINOMA
     Dosage: 1200 MG, Q3WEEKS
     Route: 042
     Dates: start: 20191025, end: 20200609
  2. MAGNE B6 [Concomitant]
     Active Substance: MAGNESIUM\PYRIDOXINE
  3. KETOPROFEN. [Concomitant]
     Active Substance: KETOPROFEN
  4. TAROMENTIN [Concomitant]
  5. ESTAZOLAM. [Concomitant]
     Active Substance: ESTAZOLAM
  6. JANUVIA [Concomitant]
     Active Substance: SITAGLIPTIN PHOSPHATE
  7. TRAMAL [Concomitant]
     Active Substance: TRAMADOL
  8. BISEPTOL [Concomitant]
     Active Substance: SULFAMETHOXAZOLE\TRIMETHOPRIM
  9. NYSTATIN. [Concomitant]
     Active Substance: NYSTATIN
  10. PANTOPRAZOL [Concomitant]
     Active Substance: PANTOPRAZOLE SODIUM
  11. ASMAG [Concomitant]
  12. XL184 [Suspect]
     Active Substance: CABOZANTINIB
     Indication: HEPATOCELLULAR CARCINOMA
     Dosage: 40 MG, QD
     Route: 048
     Dates: start: 20191025
  13. RYTMONORM [Concomitant]
     Active Substance: PROPAFENONE
  14. EUTHYROX [Concomitant]
     Active Substance: LEVOTHYROXINE SODIUM
  15. ACEROLA [Concomitant]
     Active Substance: ACEROLA
  16. CEFTRIAXONE. [Concomitant]
     Active Substance: CEFTRIAXONE
  17. XL184 [Suspect]
     Active Substance: CABOZANTINIB
     Dosage: 40 MG, QD
     Route: 048
     Dates: start: 20200629, end: 20200720
  18. METFORMAX [Concomitant]
     Active Substance: METFORMIN HYDROCHLORIDE
  19. ACARD [ACETYLSALICYLIC ACID] [Concomitant]
     Active Substance: ASPIRIN
  20. CONCOR COR [Concomitant]
     Active Substance: BISOPROLOL FUMARATE
  21. SOLCOSERYL [Concomitant]
     Active Substance: SOLCOSERYL
  22. POSTERISAN H [Concomitant]
  23. CAVINTON [Concomitant]
     Active Substance: VINPOCETINE
  24. TRAMADOL. [Concomitant]
     Active Substance: TRAMADOL
  25. ENCORTON [Concomitant]
     Active Substance: PREDNISONE
  26. CIPROFLOXACIN. [Concomitant]
     Active Substance: CIPROFLOXACIN
  27. CARVISTAR [Concomitant]
  28. PARACETAMOL [Concomitant]
     Active Substance: ACETAMINOPHEN
  29. POLPRAZOL [Concomitant]
     Active Substance: OMEPRAZOLE

REACTIONS (2)
  - Pneumonitis [Recovered/Resolved]
  - Immune-mediated pneumonitis [Recovered/Resolved]

NARRATIVE: CASE EVENT DATE: 20200220
